FAERS Safety Report 7897452-1 (Version None)
Quarter: 2011Q4

REPORT INFORMATION
  Report Type: 
  Country: None (occurrence: None)
  Receive Date: 20111107
  Receipt Date: 20111103
  Transmission Date: 20120403
  Serious: No
  Sender: FDA-Public Use
  Company Number: US-JNJFOC-20111009630

PATIENT
  Sex: Female
  Weight: 81.65 kg

DRUGS (5)
  1. DURAGESIC-100 [Suspect]
     Indication: PAIN
     Dosage: TWO 25 MCG
     Route: 062
  2. ULTRAM [Concomitant]
     Indication: PAIN
     Route: 048
  3. LYRICA [Concomitant]
     Indication: PAIN
     Route: 048
     Dates: start: 20030101
  4. DURAGESIC-100 [Suspect]
     Dosage: TWO 25 MCG
     Route: 062
     Dates: start: 20100101
  5. LEVOTHROID [Concomitant]
     Indication: THYROID DISORDER
     Route: 048

REACTIONS (2)
  - WRONG TECHNIQUE IN DRUG USAGE PROCESS [None]
  - PRODUCT QUALITY ISSUE [None]
